FAERS Safety Report 8829392 (Version 1)
Quarter: 2012Q4

REPORT INFORMATION
  Report Type: 
  Country: BR (occurrence: BR)
  Receive Date: 20121008
  Receipt Date: 20121008
  Transmission Date: 20130627
  Serious: Yes (Hospitalization)
  Sender: FDA-Public Use
  Company Number: BR-B.I. PHARMACEUTICALS,INC./RIDGEFIELD-2012-BR-01129BR

PATIENT
  Age: 81 Year
  Sex: Female

DRUGS (8)
  1. PRADAXA [Suspect]
     Indication: CEREBROVASCULAR ACCIDENT PROPHYLAXIS
     Dosage: 220 mg
     Route: 048
     Dates: start: 201202, end: 201208
  2. PRADAXA [Suspect]
     Dosage: 110 mg
     Route: 048
     Dates: start: 201208
  3. CLOPIDOGREL [Suspect]
     Indication: ACUTE MYOCARDIAL INFARCTION
     Dosage: 75 mg
  4. CONCOR [Concomitant]
     Indication: CARDIAC FAILURE
  5. ESPINOLACTONA [Concomitant]
     Indication: CARDIAC FAILURE
  6. LASIX [Concomitant]
     Indication: DIURETIC THERAPY
  7. DIGOXINA [Concomitant]
     Indication: ATRIAL FIBRILLATION
  8. SIMVASTATINA [Concomitant]
     Indication: BLOOD CHOLESTEROL

REACTIONS (3)
  - Acute myocardial infarction [Recovered/Resolved]
  - Incorrect drug dosage form administered [Not Recovered/Not Resolved]
  - Gingival bleeding [Recovered/Resolved]
